FAERS Safety Report 18767192 (Version 1)
Quarter: 2021Q1

REPORT INFORMATION
  Report Type: Spontaneous
  Country: US (occurrence: US)
  Receive Date: 20210121
  Receipt Date: 20210121
  Transmission Date: 20210419
  Serious: Yes (Death, Hospitalization)
  Sender: FDA-Public Use
  Company Number: US-PFIZER INC-2021021774

PATIENT
  Age: 15 Year
  Sex: Female
  Weight: 50 kg

DRUGS (1)
  1. DOXEPIN HCL [Suspect]
     Active Substance: DOXEPIN HYDROCHLORIDE
     Dosage: APPROXIMATELY 3 G

REACTIONS (3)
  - Acute respiratory distress syndrome [Fatal]
  - Respiratory failure [Fatal]
  - Overdose [Fatal]

NARRATIVE: CASE EVENT DATE: 198408
